FAERS Safety Report 18825851 (Version 6)
Quarter: 2021Q4

REPORT INFORMATION
  Report Type: Report from Study
  Country: US (occurrence: US)
  Receive Date: 20210202
  Receipt Date: 20211120
  Transmission Date: 20220303
  Serious: Yes (Hospitalization, Other)
  Sender: FDA-Public Use
  Company Number: NVSC2021US024560

PATIENT
  Age: 80 Year
  Sex: Male

DRUGS (1)
  1. ENTRESTO [Suspect]
     Active Substance: SACUBITRIL\VALSARTAN
     Indication: Product used for unknown indication
     Dosage: 50 MG, BID 24/26 MG, (SECUBITRIL 24.3MG, VALSARTAN 25.7MG)
     Route: 048
     Dates: start: 202010

REACTIONS (9)
  - Acute kidney injury [Recovering/Resolving]
  - Loss of consciousness [Unknown]
  - Dehydration [Recovering/Resolving]
  - Bacterial infection [Recovering/Resolving]
  - Gastrointestinal ulcer [Recovering/Resolving]
  - Joint swelling [Unknown]
  - Arthralgia [Unknown]
  - Arthritis [Unknown]
  - Diarrhoea [Not Recovered/Not Resolved]

NARRATIVE: CASE EVENT DATE: 20210601
